FAERS Safety Report 23197904 (Version 1)
Quarter: 2023Q4

REPORT INFORMATION
  Report Type: Spontaneous
  Country: US (occurrence: None)
  Receive Date: 20231117
  Receipt Date: 20231117
  Transmission Date: 20240110
  Serious: Yes (Other)
  Sender: FDA-Public Use
  Company Number: None

PATIENT
  Age: 42 Year
  Sex: Female

DRUGS (8)
  1. KENALOG [Suspect]
     Active Substance: TRIAMCINOLONE ACETONIDE
     Indication: Osteoarthritis
     Dates: start: 20230724, end: 20231103
  2. METOPROLOL SUCCINATE [Concomitant]
     Active Substance: METOPROLOL SUCCINATE
  3. OMEPRAZOLE [Concomitant]
     Active Substance: OMEPRAZOLE
  4. SERTRALINE [Concomitant]
     Active Substance: SERTRALINE HYDROCHLORIDE
  5. ASPIRIN [Concomitant]
     Active Substance: ASPIRIN
  6. PROBIOTICS NOS [Concomitant]
     Active Substance: PROBIOTICS NOS
  7. VITAMINS [Concomitant]
     Active Substance: VITAMINS
  8. COENZYME Q10 [Concomitant]
     Active Substance: DIETARY SUPPLEMENT\UBIDECARENONE

REACTIONS (14)
  - Menometrorrhagia [None]
  - Flushing [None]
  - Flushing [None]
  - Burning sensation [None]
  - Skin burning sensation [None]
  - Skin burning sensation [None]
  - Blood pressure increased [None]
  - Dizziness [None]
  - Headache [None]
  - Tinnitus [None]
  - Nausea [None]
  - Feeling jittery [None]
  - Anxiety [None]
  - Brain fog [None]

NARRATIVE: CASE EVENT DATE: 20231108
